FAERS Safety Report 4469011-4 (Version None)
Quarter: 2004Q4

REPORT INFORMATION
  Report Type: 
  Country: None (occurrence: None)
  Receive Date: 20041005
  Receipt Date: 20040920
  Transmission Date: 20050328
  Serious: Yes (Life-Threatening)
  Sender: FDA-Public Use
  Company Number: 1998-FF-S2688

PATIENT
  Age: 24 Year
  Sex: Female

DRUGS (5)
  1. VIRAMUNE [Suspect]
     Indication: HIV INFECTION CDC GROUP I
     Dosage: 200 MG (200 MG, 1 IN 1 D)  PO : 400 MG (200 MG, 1 IN 12 HR) PO
     Route: 048
     Dates: start: 19980928, end: 19981011
  2. VIRAMUNE [Suspect]
     Indication: HIV INFECTION CDC GROUP I
     Dosage: 200 MG (200 MG, 1 IN 1 D)  PO : 400 MG (200 MG, 1 IN 12 HR) PO
     Route: 048
     Dates: start: 19981012
  3. VIDEX [Concomitant]
  4. VIRACEPT [Concomitant]
  5. ZERIT [Concomitant]

REACTIONS (10)
  - ABORTION INDUCED [None]
  - ALBUMIN URINE PRESENT [None]
  - BLOOD HIV RNA INCREASED [None]
  - BLOOD PRESSURE ABNORMAL [None]
  - BLOOD URINE [None]
  - CD4 LYMPHOCYTES DECREASED [None]
  - DRUG EXPOSURE DURING PREGNANCY [None]
  - HEART RATE INCREASED [None]
  - STILLBIRTH [None]
  - UTERINE CONTRACTIONS DURING PREGNANCY [None]
